FAERS Safety Report 14112567 (Version 2)
Quarter: 2017Q4

REPORT INFORMATION
  Report Type: Spontaneous
  Country: TW (occurrence: TW)
  Receive Date: 20171020
  Receipt Date: 20171027
  Transmission Date: 20180321
  Serious: Yes (Other)
  Sender: FDA-Public Use
  Company Number: TW-IPSEN BIOPHARMACEUTICALS, INC.-2017-12241

PATIENT
  Age: 50 Year
  Sex: Female

DRUGS (1)
  1. BOTULINUM TOXIN TYPE A NOS [Suspect]
     Active Substance: BOTULINUM TOXIN TYPE A
     Indication: BLEPHAROSPASM
     Dosage: 30 UNITS
     Route: 065

REACTIONS (3)
  - Angle closure glaucoma [Recovering/Resolving]
  - Optic neuropathy [Not Recovered/Not Resolved]
  - Pupil fixed [Unknown]
